FAERS Safety Report 9120727 (Version 1)
Quarter: 2013Q1

REPORT INFORMATION
  Report Type: Spontaneous
  Country: US (occurrence: US)
  Receive Date: 20130226
  Receipt Date: 20130226
  Transmission Date: 20140127
  Serious: Yes (Death)
  Sender: FDA-Public Use
  Company Number: US-ROCHE-1194050

PATIENT
  Age: 49 Year
  Sex: Male

DRUGS (12)
  1. CLONAZEPAM [Suspect]
     Indication: PRODUCT USED FOR UNKNOWN INDICATION
     Route: 048
  2. CLONAZEPAM [Suspect]
     Dosage: OVERDOSE
     Route: 048
  3. VALPROIC ACID [Suspect]
     Indication: PRODUCT USED FOR UNKNOWN INDICATION
     Route: 048
  4. VALPROIC ACID [Suspect]
     Dosage: OVERDOSE
     Route: 048
  5. HALOPERIDOL [Suspect]
     Indication: PRODUCT USED FOR UNKNOWN INDICATION
     Route: 048
  6. HALOPERIDOL [Suspect]
     Dosage: OVERDOSE
     Route: 048
  7. LAMOTRIGINE [Suspect]
     Indication: PRODUCT USED FOR UNKNOWN INDICATION
     Route: 048
  8. LAMOTRIGINE [Suspect]
     Dosage: OVERDOSE
     Route: 048
  9. ATENOLOL [Suspect]
     Indication: PRODUCT USED FOR UNKNOWN INDICATION
     Dosage: OVERDOSE
     Route: 048
  10. ATENOLOL [Suspect]
     Route: 048
  11. OMEPRAZOLE [Suspect]
     Indication: PRODUCT USED FOR UNKNOWN INDICATION
     Route: 048
  12. OMEPRAZOLE [Suspect]
     Dosage: OVERDOSE
     Route: 048

REACTIONS (1)
  - Toxicity to various agents [Fatal]
